FAERS Safety Report 7391831-7 (Version None)
Quarter: 2011Q2

REPORT INFORMATION
  Report Type: 
  Country: None (occurrence: None)
  Receive Date: 20110404
  Receipt Date: 20110328
  Transmission Date: 20111010
  Serious: Yes (Death, Life-Threatening, Hospitalization)
  Sender: FDA-Public Use
  Company Number: BR-ROCHE-767883

PATIENT
  Sex: Female

DRUGS (3)
  1. CAPECITABINE [Suspect]
     Indication: BREAST CANCER
     Dosage: 2000MG/M2 WHICH IS 3000MG PER DAY
     Route: 048
     Dates: start: 20080811, end: 20080824
  2. PARACETAMOL [Concomitant]
     Dosage: EVERYDAY
     Route: 048
  3. ATENOLOL [Concomitant]
     Dosage: EVERYDAY
     Route: 048

REACTIONS (3)
  - DEATH [None]
  - DIARRHOEA [None]
  - VOMITING [None]
